FAERS Safety Report 13962346 (Version 7)
Quarter: 2018Q2

REPORT INFORMATION
  Report Type: Report from Study
  Country: None (occurrence: US)
  Receive Date: 20170912
  Receipt Date: 20180621
  Transmission Date: 20180711
  Serious: Yes (Other)
  Sender: FDA-Public Use
  Company Number: US-ABBVIE-17K-163-2097936-00

PATIENT
  Age: 27 Year
  Sex: Female
  Weight: 39.04 kg

DRUGS (2)
  1. HUMIRA [Suspect]
     Active Substance: ADALIMUMAB
     Route: 058
     Dates: end: 201705
  2. HUMIRA [Suspect]
     Active Substance: ADALIMUMAB
     Indication: CROHN^S DISEASE
     Route: 058

REACTIONS (27)
  - Haemorrhoids [Not Recovered/Not Resolved]
  - Eating disorder [Unknown]
  - Depression [Not Recovered/Not Resolved]
  - Arthritis [Unknown]
  - Crohn^s disease [Not Recovered/Not Resolved]
  - Drug specific antibody present [Not Recovered/Not Resolved]
  - Retching [Unknown]
  - Fatigue [Unknown]
  - Anxiety [Not Recovered/Not Resolved]
  - Night sweats [Unknown]
  - Drug effect decreased [Not Recovered/Not Resolved]
  - Pyrexia [Unknown]
  - Diarrhoea [Not Recovered/Not Resolved]
  - Malnutrition [Unknown]
  - Weight decreased [Unknown]
  - Nausea [Unknown]
  - Immunodeficiency [Not Recovered/Not Resolved]
  - Dizziness [Unknown]
  - Pharyngitis [Recovered/Resolved]
  - Colitis [Recovering/Resolving]
  - Frequent bowel movements [Not Recovered/Not Resolved]
  - Injection site haemorrhage [Recovering/Resolving]
  - Malabsorption [Not Recovered/Not Resolved]
  - Injection site bruising [Recovering/Resolving]
  - Loss of consciousness [Recovered/Resolved]
  - Chills [Unknown]
  - Abdominal pain upper [Unknown]

NARRATIVE: CASE EVENT DATE: 201611
